FAERS Safety Report 21802583 (Version 1)
Quarter: 2022Q4

REPORT INFORMATION
  Report Type: Spontaneous
  Country: NL (occurrence: NL)
  Receive Date: 20221231
  Receipt Date: 20221231
  Transmission Date: 20230112
  Serious: Yes (Hospitalization)
  Sender: FDA-Public Use
  Company Number: NL-LRB-00857828

PATIENT
  Sex: Male
  Weight: 85 kg

DRUGS (1)
  1. AMOXICILLIN\CLAVULANIC ACID [Suspect]
     Active Substance: AMOXICILLIN\CLAVULANIC ACID
     Indication: Erysipelas
     Dosage: 1 DOSAGE FORM(1 PIECE 3 TIMES A DAY)
     Route: 065
     Dates: start: 20221130, end: 20221202

REACTIONS (3)
  - Erythema [Recovering/Resolving]
  - Rash pustular [Recovering/Resolving]
  - Dermatitis allergic [Recovering/Resolving]
